FAERS Safety Report 10267709 (Version 1)
Quarter: 2014Q2

REPORT INFORMATION
  Report Type: Spontaneous
  Country: US (occurrence: US)
  Receive Date: 20140630
  Receipt Date: 20140630
  Transmission Date: 20141212
  Serious: Yes (Other)
  Sender: FDA-Public Use
  Company Number: US-BAYER-2014-096076

PATIENT
  Age: 24 Year
  Sex: Female

DRUGS (2)
  1. MIRENA [Suspect]
     Indication: CONTRACEPTION
     Dosage: 20 MCG/24HR, CONT
     Route: 015
     Dates: start: 20140313
  2. ZOLOFT [Concomitant]
     Dosage: UNK
     Dates: start: 201402

REACTIONS (5)
  - Chlamydial pelvic inflammatory disease [Recovered/Resolved]
  - Genital haemorrhage [Not Recovered/Not Resolved]
  - Menstruation irregular [None]
  - Abdominal pain upper [None]
  - Nausea [None]
